FAERS Safety Report 17296959 (Version 1)
Quarter: 2020Q1

REPORT INFORMATION
  Report Type: Spontaneous
  Country: US (occurrence: US)
  Receive Date: 20200121
  Receipt Date: 20200121
  Transmission Date: 20200409
  Serious: Yes (Other)
  Sender: FDA-Public Use
  Company Number: US-MYLANLABS-2020M1005480

PATIENT
  Sex: Male
  Weight: 68 kg

DRUGS (1)
  1. MUSE [Suspect]
     Active Substance: ALPROSTADIL
     Indication: ERECTILE DYSFUNCTION
     Dosage: 1000 MICROGRAM, PRN (AS NEEDED)
     Route: 066

REACTIONS (2)
  - Drug ineffective [Not Recovered/Not Resolved]
  - Penile pain [Not Recovered/Not Resolved]

NARRATIVE: CASE EVENT DATE: 2019
